FAERS Safety Report 5993651-4 (Version None)
Quarter: 2008Q4

REPORT INFORMATION
  Report Type: 
  Country: None (occurrence: None)
  Receive Date: 20081212
  Receipt Date: 20081209
  Transmission Date: 20090506
  Serious: Yes (Life-Threatening)
  Sender: FDA-Public Use
  Company Number: PHEH2008US10879

PATIENT
  Sex: Female

DRUGS (1)
  1. EXELON [Suspect]
     Dosage: 9.5 MG, UNK
     Route: 062

REACTIONS (5)
  - ACCIDENTAL EXPOSURE [None]
  - APNOEA [None]
  - APPARENT LIFE THREATENING EVENT [None]
  - LETHARGY [None]
  - UNRESPONSIVE TO STIMULI [None]
